FAERS Safety Report 26073564 (Version 1)
Quarter: 2025Q4

REPORT INFORMATION
  Report Type: Spontaneous
  Country: CA (occurrence: CA)
  Receive Date: 20251121
  Receipt Date: 20251121
  Transmission Date: 20260117
  Serious: Yes (Other)
  Sender: APOTEX
  Company Number: CA-PGRTD-E2B_08191622

PATIENT
  Age: 19 Year
  Sex: Female

DRUGS (2)
  1. LETROZOLE [Suspect]
     Active Substance: LETROZOLE
     Indication: Ovarian cancer
     Route: 065
  2. ANASTROZOLE [Suspect]
     Active Substance: ANASTROZOLE
     Indication: Ovarian cancer
     Route: 065

REACTIONS (3)
  - Malignant neoplasm progression [Unknown]
  - Ovarian cancer [Unknown]
  - Drug ineffective for unapproved indication [Unknown]
